FAERS Safety Report 23909768 (Version 1)
Quarter: 2024Q2

REPORT INFORMATION
  Report Type: Spontaneous
  Country: CH (occurrence: CH)
  Receive Date: 20240528
  Receipt Date: 20240528
  Transmission Date: 20240716
  Serious: Yes (Hospitalization, Other)
  Sender: FDA-Public Use
  Company Number: CH-AMNEAL PHARMACEUTICALS-2024-AMRX-01864

PATIENT
  Age: 53 Year
  Sex: Male

DRUGS (3)
  1. IBUPROFEN [Suspect]
     Active Substance: IBUPROFEN
     Indication: Bursitis
     Dosage: UNK
     Route: 065
  2. AMOXICILLIN\CLAVULANIC ACID [Suspect]
     Active Substance: AMOXICILLIN\CLAVULANIC ACID
     Indication: Bursitis
     Dosage: UNK
     Route: 065
  3. METAMIZOLE [Suspect]
     Active Substance: METAMIZOLE
     Indication: Bursitis
     Dosage: UNK
     Route: 065

REACTIONS (7)
  - Splenomegaly [Recovering/Resolving]
  - Respiratory distress [Recovering/Resolving]
  - Lymphadenopathy mediastinal [Recovering/Resolving]
  - Hilar lymphadenopathy [Recovering/Resolving]
  - Proteinuria [Recovering/Resolving]
  - Acute kidney injury [Recovering/Resolving]
  - Liver disorder [Recovering/Resolving]
